FAERS Safety Report 15489572 (Version 2)
Quarter: 2018Q4

REPORT INFORMATION
  Report Type: Report from Study
  Country: DK (occurrence: DK)
  Receive Date: 20181011
  Receipt Date: 20181017
  Transmission Date: 20190205
  Serious: Yes (Other)
  Sender: FDA-Public Use
  Company Number: DK-PFIZER INC-2018407466

PATIENT
  Age: 50 Year
  Sex: Female

DRUGS (7)
  1. PERAMPANEL [Interacting]
     Active Substance: PERAMPANEL
     Dosage: 4 MG, DAILY
  2. LAMOTRIGINE. [Concomitant]
     Active Substance: LAMOTRIGINE
     Indication: PARTIAL SEIZURES
     Dosage: UNK
  3. LEVETIRACETAM. [Suspect]
     Active Substance: LEVETIRACETAM
     Indication: PARTIAL SEIZURES
     Dosage: UNK
  4. PERAMPANEL [Interacting]
     Active Substance: PERAMPANEL
     Indication: PARTIAL SEIZURES
     Dosage: 2 MG, 1X/DAY AT BEDTIME
  5. PREGABALIN. [Concomitant]
     Active Substance: PREGABALIN
     Indication: PARTIAL SEIZURES
     Dosage: UNK
  6. PERAMPANEL [Interacting]
     Active Substance: PERAMPANEL
     Dosage: 6 MG, DAILY
  7. CLOBAZAM. [Concomitant]
     Active Substance: CLOBAZAM
     Indication: PARTIAL SEIZURES
     Dosage: UNK

REACTIONS (7)
  - Disturbance in attention [Unknown]
  - Dizziness [Unknown]
  - Mood altered [Unknown]
  - Drug tolerance decreased [Unknown]
  - Fatigue [Unknown]
  - Aggression [Recovering/Resolving]
  - Drug interaction [Unknown]
